FAERS Safety Report 5239218-7 (Version None)
Quarter: 2007Q1

REPORT INFORMATION
  Report Type: 
  Country: None (occurrence: None)
  Receive Date: 20061208
  Receipt Date: 20050602
  Transmission Date: 20070707
  Serious: Yes (Other)
  Sender: FDA-Public Use
  Company Number: 2005UW08539

PATIENT
  Age: 63 Year
  Sex: Male
  Weight: 124.28 kg

DRUGS (11)
  1. CRESTOR [Suspect]
     Indication: BLOOD CHOLESTEROL INCREASED
     Dosage: 5 MG PO
     Route: 048
     Dates: start: 20050524, end: 20050526
  2. TOPROL-XL [Concomitant]
  3. ACTOS [Concomitant]
  4. LASIX [Concomitant]
  5. ZAROXOLYN [Concomitant]
  6. TERAZOSIN HCL [Concomitant]
  7. COUMADIN [Concomitant]
  8. KLOR-CON [Concomitant]
  9. DYRENIUM [Concomitant]
  10. DICLOXACILLIN [Concomitant]
  11. GLYBURIDE [Concomitant]

REACTIONS (3)
  - ARTHRALGIA [None]
  - BLISTER INFECTED [None]
  - BLOOD URIC ACID INCREASED [None]
